FAERS Safety Report 5621816-X (Version None)
Quarter: 2008Q1

REPORT INFORMATION
  Report Type: 
  Country: None (occurrence: None)
  Receive Date: 20080211
  Receipt Date: 20080131
  Transmission Date: 20080703
  Serious: Yes (Hospitalization)
  Sender: FDA-Public Use
  Company Number: PHRM2008FR00686

PATIENT
  Age: 72 Year
  Sex: Female

DRUGS (7)
  1. FEMARA [Suspect]
     Route: 048
     Dates: start: 20060101
  2. VALSARTAN AND HYDROCHLOROTHIAZIDE [Suspect]
     Route: 048
     Dates: start: 20030101
  3. DETENSIEL [Suspect]
     Dosage: UNK, UNK
     Route: 048
     Dates: start: 20030101
  4. SERC [Suspect]
     Route: 048
     Dates: start: 20010101
  5. ENDOTELON [Suspect]
     Route: 048
     Dates: start: 20000101
  6. FOSAVANCE [Suspect]
     Route: 048
     Dates: start: 20060101
  7. CHONDROSULF [Suspect]
     Route: 048
     Dates: start: 20060101

REACTIONS (12)
  - C-REACTIVE PROTEIN INCREASED [None]
  - CHEILITIS [None]
  - DERMATITIS [None]
  - DRUG RASH WITH EOSINOPHILIA AND SYSTEMIC SYMPTOMS [None]
  - EOSINOPHILIA [None]
  - INFLAMMATION [None]
  - PRURITUS [None]
  - PYREXIA [None]
  - RASH [None]
  - RENAL FAILURE [None]
  - SKIN EROSION [None]
  - TRANSAMINASES INCREASED [None]
